FAERS Safety Report 5300298-1 (Version None)
Quarter: 2007Q2

REPORT INFORMATION
  Report Type: 
  Country: None (occurrence: None)
  Receive Date: 20070411
  Receipt Date: 20070321
  Transmission Date: 20071010
  Serious: Yes (Other)
  Sender: FDA-Public Use
  Company Number: 070303126

PATIENT
  Age: 47 Year
  Sex: Female

DRUGS (4)
  1. MOXIFLOXACIN HCL [Suspect]
     Indication: RESPIRATORY TRACT INFECTION
     Dates: start: 20070314, end: 20070314
  2. MUCINEX DM [Suspect]
     Indication: RESPIRATORY TRACT INFECTION
     Dosage: 1 TABL, EVERY 12 HOURS, ORAL
     Route: 048
     Dates: start: 20070228, end: 20070314
  3. TRANXENE [Concomitant]
  4. TYLENOL (CAPLET) [Concomitant]

REACTIONS (5)
  - EYE SWELLING [None]
  - OEDEMA PERIPHERAL [None]
  - PHARYNGEAL OEDEMA [None]
  - SWOLLEN TONGUE [None]
  - URTICARIA [None]
